FAERS Safety Report 7282713-X (Version None)
Quarter: 2011Q1

REPORT INFORMATION
  Report Type: 
  Country: None (occurrence: None)
  Receive Date: 20110128
  Receipt Date: 20110120
  Transmission Date: 20110831
  Serious: Yes (Death)
  Sender: FDA-Public Use
  Company Number: 1000018302

PATIENT
  Age: 65 Year
  Sex: Male

DRUGS (6)
  1. LEVOTHROID [Suspect]
  2. TRAZODONE(TRAZODONE) [Suspect]
  3. SIMVASTATIN [Suspect]
  4. LORAZEPAM [Suspect]
  5. HYDROCHLOROTHIAZIDE/OLMESARTAN (HYDROCHLOROTHIAZIDE, OLMESARTAN) [Suspect]
  6. RANITIDINE (SIMVASTATIN) [Suspect]

REACTIONS (3)
  - COMPLETED SUICIDE [None]
  - MULTIPLE DRUG OVERDOSE INTENTIONAL [None]
  - CARDIO-RESPIRATORY ARREST [None]
